FAERS Safety Report 8162725-4 (Version None)
Quarter: 2012Q1

REPORT INFORMATION
  Report Type: 
  Country: None (occurrence: None)
  Receive Date: 20120224
  Receipt Date: 20120210
  Transmission Date: 20120608
  Serious: Yes (Other)
  Sender: FDA-Public Use
  Company Number: BE-CELGENEUS-013-21880-10110790

PATIENT
  Age: 72 Year
  Sex: Male
  Weight: 66 kg

DRUGS (4)
  1. REVLIMID [Suspect]
     Indication: MYELOFIBROSIS
     Dosage: 5 MILLIGRAM
     Route: 048
     Dates: start: 20101124
  2. EXJADE [Concomitant]
     Indication: IRON OVERLOAD
     Dosage: 1500 MILLIGRAM
     Route: 065
     Dates: start: 20090622, end: 20090831
  3. REVLIMID [Suspect]
     Dosage: 10 MILLIGRAM
     Route: 048
     Dates: start: 20090928, end: 20101108
  4. EXJADE [Concomitant]
     Dosage: 500 MILLIGRAM
     Route: 065
     Dates: start: 20090831, end: 20110420

REACTIONS (2)
  - RENAL CANCER [None]
  - RENAL IMPAIRMENT [None]
